FAERS Safety Report 10751909 (Version 1)
Quarter: 2015Q1

REPORT INFORMATION
  Report Type: Spontaneous
  Country: US (occurrence: US)
  Receive Date: 20150130
  Receipt Date: 20150130
  Transmission Date: 20150721
  Serious: No
  Sender: FDA-Public Use
  Company Number: US-ENDO PHARMACEUTICALS INC.-FORT20140173

PATIENT
  Sex: Male

DRUGS (2)
  1. FORTESTA [Suspect]
     Active Substance: TESTOSTERONE
     Indication: ANDROGEN DEFICIENCY
     Dosage: UNKNOWN
     Route: 061
  2. FORTESTA [Suspect]
     Active Substance: TESTOSTERONE
     Dosage: VARIED
     Route: 061

REACTIONS (7)
  - Feeling jittery [Unknown]
  - Flushing [Unknown]
  - Blood testosterone increased [Unknown]
  - Somnolence [Unknown]
  - Drug ineffective [Unknown]
  - Application site fissure [Unknown]
  - Asthenia [Unknown]
